FAERS Safety Report 11794777 (Version 3)
Quarter: 2016Q1

REPORT INFORMATION
  Report Type: Spontaneous
  Country: US (occurrence: US)
  Receive Date: 20151202
  Receipt Date: 20160204
  Transmission Date: 20160525
  Serious: Yes (Other)
  Sender: FDA-Public Use
  Company Number: US-BAYER-2015-473671

PATIENT
  Age: 37 Year
  Sex: Female
  Weight: 136.33 kg

DRUGS (8)
  1. MIRENA [Suspect]
     Active Substance: LEVONORGESTREL
     Indication: CONTRACEPTION
     Dosage: 20 MCG/24HR, CONT
     Route: 015
     Dates: start: 20150903, end: 20151113
  2. NORETHINDRONE. [Concomitant]
     Active Substance: NORETHINDRONE
     Route: 048
  3. NIFEDIPINE. [Concomitant]
     Active Substance: NIFEDIPINE
     Route: 048
  4. CITALOPRAM HYDROBROMIDE. [Concomitant]
     Active Substance: CITALOPRAM HYDROBROMIDE
     Route: 048
  5. SIMVASTATIN. [Concomitant]
     Active Substance: SIMVASTATIN
     Route: 048
  6. TRIAMTERENE AND HYDROCHLOROTHIAZIDE [Concomitant]
     Active Substance: HYDROCHLOROTHIAZIDE\TRIAMTERENE
     Route: 048
  7. LOSARTAN POTASSIUM. [Concomitant]
     Active Substance: LOSARTAN POTASSIUM
     Route: 048
  8. SPIRONOLACTONE. [Concomitant]
     Active Substance: SPIRONOLACTONE
     Route: 048

REACTIONS (14)
  - Back pain [None]
  - Pelvic pain [None]
  - Device issue [None]
  - Blood pressure increased [None]
  - Menorrhagia [None]
  - Pain [None]
  - Uterine haemorrhage [Recovered/Resolved]
  - Device dislocation [None]
  - Uterine leiomyoma [None]
  - Perineal pain [None]
  - Ovarian cyst [None]
  - Endometrial thickening [None]
  - Polycystic ovaries [None]
  - Dysmenorrhoea [None]

NARRATIVE: CASE EVENT DATE: 201511
